FAERS Safety Report 6073342-4 (Version None)
Quarter: 2009Q1

REPORT INFORMATION
  Report Type: 
  Country: None (occurrence: None)
  Receive Date: 20090211
  Receipt Date: 20090203
  Transmission Date: 20090719
  Serious: Yes (Other)
  Sender: FDA-Public Use
  Company Number: PHHY2009SE03718

PATIENT
  Sex: Male

DRUGS (4)
  1. RITALIN [Suspect]
     Indication: ATTENTION DEFICIT/HYPERACTIVITY DISORDER
     Dosage: 40 MG, UNK
     Dates: start: 20080903
  2. EFFEXOR [Concomitant]
     Dosage: 300 MG, UNK
  3. EFFEXOR [Concomitant]
     Dosage: 225 MG, UNK
  4. ZYPREXA [Concomitant]
     Indication: INSOMNIA

REACTIONS (10)
  - ANXIETY [None]
  - BLOOD PRESSURE INCREASED [None]
  - INSOMNIA [None]
  - MUSCULOSKELETAL PAIN [None]
  - NIGHTMARE [None]
  - OEDEMA PERIPHERAL [None]
  - OVERDOSE [None]
  - PSYCHOTIC DISORDER [None]
  - STRESS [None]
  - STUPOR [None]
